FAERS Safety Report 7615783-7 (Version None)
Quarter: 2011Q3

REPORT INFORMATION
  Report Type: 
  Country: None (occurrence: None)
  Receive Date: 20110711
  Receipt Date: 20110625
  Transmission Date: 20111222
  Serious: Yes (Other)
  Sender: FDA-Public Use
  Company Number: TPA2011A03541

PATIENT
  Age: 50 Year
  Sex: Male

DRUGS (4)
  1. METFORMIN HCL [Concomitant]
  2. ACTOS [Suspect]
     Dosage: 45 MG, PER ORAL
     Route: 048
     Dates: start: 20060101
  3. JANUVIA [Concomitant]
  4. GLYBURIDE [Concomitant]

REACTIONS (1)
  - BLADDER CANCER [None]
